FAERS Safety Report 8485646-6 (Version None)
Quarter: 2012Q3

REPORT INFORMATION
  Report Type: 
  Country: None (occurrence: None)
  Receive Date: 20120703
  Receipt Date: 20120626
  Transmission Date: 20120928
  Serious: Yes (Hospitalization)
  Sender: FDA-Public Use
  Company Number: FR-B.I. PHARMACEUTICALS,INC./RIDGEFIELD-2012-FF-00788FF

PATIENT
  Sex: Female

DRUGS (3)
  1. PLAVIX [Concomitant]
  2. PRADAXA [Suspect]
     Indication: ATRIAL FIBRILLATION
     Dosage: 220 MG
     Route: 048
  3. KARDEGIC [Concomitant]

REACTIONS (1)
  - PHLEBITIS [None]
